FAERS Safety Report 11341741 (Version 1)
Quarter: 2015Q3

REPORT INFORMATION
  Report Type: Spontaneous
  Country: BR (occurrence: BR)
  Receive Date: 20150805
  Receipt Date: 20150805
  Transmission Date: 20151125
  Serious: Yes (Death)
  Sender: FDA-Public Use
  Company Number: PHHY2015BR091827

PATIENT
  Age: 96 Year
  Sex: Female

DRUGS (3)
  1. ALOIN [Concomitant]
     Active Substance: ALOIN
     Indication: CONSTIPATION
     Route: 065
  2. HYDERGINE [Suspect]
     Active Substance: ERGOLOID MESYLATES
     Indication: CEREBROSPINAL FLUID CIRCULATION DISORDER
     Dosage: 1 DF, QD (AT NIGHT)
     Route: 048
  3. METHYLENE BLUE. [Concomitant]
     Active Substance: METHYLENE BLUE
     Indication: CONSTIPATION
     Route: 065

REACTIONS (1)
  - Gastrointestinal carcinoma [Fatal]
